FAERS Safety Report 5505139-5 (Version None)
Quarter: 2007Q4

REPORT INFORMATION
  Report Type: 
  Country: None (occurrence: None)
  Receive Date: 20071031
  Receipt Date: 20071023
  Transmission Date: 20080405
  Serious: Yes (Hospitalization, Disabling)
  Sender: FDA-Public Use
  Company Number: SP01314

PATIENT
  Age: 33 Year
  Sex: Male
  Weight: 83.0083 kg

DRUGS (5)
  1. COLAZAL [Suspect]
     Indication: COLITIS ULCERATIVE
     Dosage: 6.75 GM (2.25 GM, 3 IN 1 D), ORAL
     Route: 048
     Dates: start: 20060420
  2. AZATHIOPRINE [Concomitant]
  3. PRIMAL DEFENSE [Concomitant]
  4. PREDNISONE (TABLETS) [Concomitant]
  5. MECLIZINE [Concomitant]

REACTIONS (6)
  - DEHYDRATION [None]
  - GLOMERULOSCLEROSIS [None]
  - NEPHRITIS INTERSTITIAL [None]
  - PYREXIA [None]
  - RENAL FAILURE ACUTE [None]
  - RENAL TUBULAR NECROSIS [None]
